FAERS Safety Report 26035784 (Version 1)
Quarter: 2025Q4

REPORT INFORMATION
  Report Type: Spontaneous
  Country: US (occurrence: None)
  Receive Date: 20251112
  Receipt Date: 20251112
  Transmission Date: 20260117
  Serious: Yes (Other)
  Sender: FDA-CTU
  Company Number: None

PATIENT
  Age: 92 Year
  Sex: Male

DRUGS (1)
  1. PIRFENIDONE [Suspect]
     Active Substance: PIRFENIDONE
     Indication: Interstitial lung disease
     Dosage: 267MG TID ORAL??STOP:  ON HOLD
     Route: 048
     Dates: start: 20251024

REACTIONS (3)
  - Diarrhoea [None]
  - Drug intolerance [None]
  - Therapy interrupted [None]

NARRATIVE: CASE EVENT DATE: 20251105
